FAERS Safety Report 6058214-3 (Version None)
Quarter: 2009Q1

REPORT INFORMATION
  Report Type: 
  Country: None (occurrence: None)
  Receive Date: 20090130
  Receipt Date: 20090125
  Transmission Date: 20090719
  Serious: Yes (Hospitalization)
  Sender: FDA-Public Use
  Company Number: DE-JNJFOC-20090105892

PATIENT
  Age: 32 Year
  Sex: Female
  Weight: 85.8 kg

DRUGS (1)
  1. INVEGA [Suspect]
     Indication: PSYCHOTIC DISORDER
     Route: 048

REACTIONS (1)
  - PANIC ATTACK [None]
